FAERS Safety Report 16679338 (Version 3)
Quarter: 2019Q4

REPORT INFORMATION
  Report Type: Spontaneous
  Country: ES (occurrence: ES)
  Receive Date: 20190807
  Receipt Date: 20191220
  Transmission Date: 20200122
  Serious: Yes (Other)
  Sender: FDA-Public Use
  Company Number: ES-ASTRAZENECA-2019SF11278

PATIENT
  Age: 4 Month
  Sex: Female
  Weight: 5.8 kg

DRUGS (2)
  1. MINOXIDIL (782A) [Suspect]
     Active Substance: MINOXIDIL
     Indication: GASTROOESOPHAGEAL REFLUX DISEASE
     Route: 065
     Dates: start: 20190618, end: 201907
  2. OMEPRAZOLE. [Suspect]
     Active Substance: OMEPRAZOLE
     Indication: GASTROOESOPHAGEAL REFLUX DISEASE
     Dosage: 100 ML (1.3/12 HOURS)
     Route: 048
     Dates: start: 20190618, end: 201907

REACTIONS (3)
  - Hirsutism [Unknown]
  - Hair disorder [Unknown]
  - Product formulation issue [Unknown]

NARRATIVE: CASE EVENT DATE: 20190701
